FAERS Safety Report 17505501 (Version 1)
Quarter: 2020Q1

REPORT INFORMATION
  Report Type: Spontaneous
  Country: US (occurrence: US)
  Receive Date: 20200305
  Receipt Date: 20200305
  Transmission Date: 20200409
  Serious: No
  Sender: FDA-Public Use
  Company Number: US-TEVA-2020-US-1192906

PATIENT
  Sex: Female

DRUGS (3)
  1. OSELTAMIVIR [Suspect]
     Active Substance: OSELTAMIVIR
     Indication: INFLUENZA
     Route: 065
  2. AZITHROMYCIN ANHYDROUS. [Suspect]
     Active Substance: AZITHROMYCIN ANHYDROUS
     Indication: ANTITUSSIVE THERAPY
     Route: 065
  3. BENZONATATE. [Suspect]
     Active Substance: BENZONATATE
     Indication: ANTITUSSIVE THERAPY
     Route: 065

REACTIONS (4)
  - Abdominal pain [Unknown]
  - Headache [Unknown]
  - Nausea [Unknown]
  - Diarrhoea [Unknown]
